FAERS Safety Report 7503687-X (Version None)
Quarter: 2011Q2

REPORT INFORMATION
  Report Type: 
  Country: None (occurrence: None)
  Receive Date: 20110525
  Receipt Date: 20110516
  Transmission Date: 20111010
  Serious: Yes (Death, Hospitalization, Other)
  Sender: FDA-Public Use
  Company Number: GB-GENZYME-CLOF-1001341

PATIENT
  Sex: Male
  Weight: 61.6 kg

DRUGS (5)
  1. CHLORPHENIRAMINE MALEATE [Concomitant]
     Indication: RASH
     Dosage: 4 MG, PRN
     Route: 048
     Dates: start: 20090613
  2. CIPROFLOXACIN [Concomitant]
     Indication: PROPHYLAXIS
     Dosage: 250 MG, UNK
     Route: 048
     Dates: start: 20090607
  3. DAUNOXOME [Suspect]
     Indication: ACUTE MYELOID LEUKAEMIA
     Dosage: 108 MG, QOD
     Route: 042
     Dates: start: 20090608, end: 20090612
  4. COTRIM [Concomitant]
     Indication: PROPHYLAXIS
     Dosage: 480 MG, UNK
     Route: 048
     Dates: start: 20090607
  5. EVOLTRA [Suspect]
     Indication: ACUTE MYELOID LEUKAEMIA
     Dosage: 54 MG, UNK
     Route: 042
     Dates: start: 20090608, end: 20090612

REACTIONS (4)
  - NEUTROPENIA [None]
  - DEATH [None]
  - PYREXIA [None]
  - STREPTOCOCCAL INFECTION [None]
